FAERS Safety Report 13411786 (Version 2)
Quarter: 2017Q4

REPORT INFORMATION
  Report Type: Spontaneous
  Country: US (occurrence: US)
  Receive Date: 20170406
  Receipt Date: 20171123
  Transmission Date: 20180320
  Serious: No
  Sender: FDA-Public Use
  Company Number: US-JNJFOC-20170304250

PATIENT
  Age: 3 Year
  Sex: Male

DRUGS (14)
  1. RISPERIDONE. [Suspect]
     Active Substance: RISPERIDONE
     Indication: OPPOSITIONAL DEFIANT DISORDER
     Route: 048
     Dates: start: 20030409
  2. RISPERDAL [Suspect]
     Active Substance: RISPERIDONE
     Indication: OPPOSITIONAL DEFIANT DISORDER
     Route: 048
     Dates: start: 20040820
  3. RISPERDAL [Suspect]
     Active Substance: RISPERIDONE
     Indication: CHRONIC TIC DISORDER
     Dosage: V1: VARYING DOSES OF 0.125 MG AND 1 MG AND VARYING FREQUENCIES.
     Route: 048
     Dates: start: 20010613, end: 20010913
  4. RISPERIDONE. [Suspect]
     Active Substance: RISPERIDONE
     Indication: CHRONIC TIC DISORDER
     Route: 048
     Dates: start: 20021209
  5. RISPERIDONE. [Suspect]
     Active Substance: RISPERIDONE
     Indication: OPPOSITIONAL DEFIANT DISORDER
     Route: 048
     Dates: end: 20030529
  6. RISPERDAL [Suspect]
     Active Substance: RISPERIDONE
     Indication: CHRONIC TIC DISORDER
     Route: 048
     Dates: start: 20010613
  7. RISPERDAL [Suspect]
     Active Substance: RISPERIDONE
     Indication: CHRONIC TIC DISORDER
     Route: 048
     Dates: start: 20040820
  8. RISPERDAL [Suspect]
     Active Substance: RISPERIDONE
     Indication: OPPOSITIONAL DEFIANT DISORDER
     Dosage: V1: VARYING DOSES OF 0.125 MG, 0.25 MG, 0.5 MG AND VARYING FREQUENCIES.
     Route: 048
     Dates: start: 20020107, end: 20040820
  9. RISPERIDONE. [Suspect]
     Active Substance: RISPERIDONE
     Indication: OPPOSITIONAL DEFIANT DISORDER
     Route: 048
     Dates: start: 20021209
  10. RISPERDAL [Suspect]
     Active Substance: RISPERIDONE
     Indication: OPPOSITIONAL DEFIANT DISORDER
     Dosage: V1: VARYING DOSES OF 0.125 MG AND 1 MG AND VARYING FREQUENCIES.
     Route: 048
     Dates: start: 20010613, end: 20010913
  11. RISPERIDONE. [Suspect]
     Active Substance: RISPERIDONE
     Indication: CHRONIC TIC DISORDER
     Route: 048
     Dates: start: 20030409
  12. RISPERIDONE. [Suspect]
     Active Substance: RISPERIDONE
     Indication: CHRONIC TIC DISORDER
     Route: 048
     Dates: end: 20030529
  13. RISPERDAL [Suspect]
     Active Substance: RISPERIDONE
     Indication: CHRONIC TIC DISORDER
     Dosage: V1: VARYING DOSES OF 0.125 MG, 0.25 MG, 0.5 MG AND VARYING FREQUENCIES.
     Route: 048
     Dates: start: 20020107, end: 20040820
  14. RISPERDAL [Suspect]
     Active Substance: RISPERIDONE
     Indication: OPPOSITIONAL DEFIANT DISORDER
     Route: 048
     Dates: start: 20010613

REACTIONS (5)
  - Emotional disorder [Unknown]
  - Product use in unapproved indication [Unknown]
  - Off label use [Unknown]
  - Gynaecomastia [Unknown]
  - Weight increased [Not Recovered/Not Resolved]

NARRATIVE: CASE EVENT DATE: 20010613
